FAERS Safety Report 13010193 (Version 1)
Quarter: 2016Q4

REPORT INFORMATION
  Report Type: Report from Study
  Country: US (occurrence: US)
  Receive Date: 20161208
  Receipt Date: 20161208
  Transmission Date: 20170207
  Serious: Yes (Hospitalization)
  Sender: FDA-Public Use
  Company Number: US-JNJFOC-20161205956

PATIENT
  Sex: Male

DRUGS (1)
  1. IMBRUVICA [Suspect]
     Active Substance: IBRUTINIB
     Indication: WALDENSTROM^S MACROGLOBULINAEMIA
     Route: 048
     Dates: start: 20160803, end: 2016

REACTIONS (5)
  - Eye disorder [Unknown]
  - Hypophagia [Unknown]
  - Headache [Unknown]
  - Cranial nerve disorder [Unknown]
  - Confusional state [Unknown]
